FAERS Safety Report 24990342 (Version 1)
Quarter: 2025Q1

REPORT INFORMATION
  Report Type: Spontaneous
  Country: US (occurrence: None)
  Receive Date: 20250220
  Receipt Date: 20250220
  Transmission Date: 20250409
  Serious: Yes (Hospitalization)
  Sender: FDA-CTU
  Company Number: None

PATIENT
  Sex: Female

DRUGS (11)
  1. LENALIDOMIDE [Suspect]
     Active Substance: LENALIDOMIDE
     Indication: Plasma cell myeloma
     Route: 058
  2. ACETAMINOPHE TAB 325MG [Concomitant]
  3. AMLODIPINE [Concomitant]
     Active Substance: AMLODIPINE BESYLATE
  4. CLOPIDOGREL TAB 75MG [Concomitant]
  5. DIPHENHYDRAM CAP 25MG [Concomitant]
  6. DULOXETINE CAP 30MG [Concomitant]
  7. ESTRADIOL TAB2MG [Concomitant]
  8. EZETIMIBE [Concomitant]
     Active Substance: EZETIMIBE
  9. HYDROCO/APAP TAB 10-300MG [Concomitant]
  10. LANTUS SOLOS INJ 100/ML [Concomitant]
  11. LEVOTHYROXIN TAB 50MCG [Concomitant]

REACTIONS (1)
  - Myocardial infarction [None]
